FAERS Safety Report 14712907 (Version 1)
Quarter: 2018Q2

REPORT INFORMATION
  Report Type: Spontaneous
  Country: US (occurrence: US)
  Receive Date: 20180404
  Receipt Date: 20180404
  Transmission Date: 20180711
  Serious: No
  Sender: FDA-Public Use
  Company Number: US-SHIRE-US201812521

PATIENT
  Age: 74 Year
  Sex: Female
  Weight: 51.7 kg

DRUGS (2)
  1. ZETRA [Concomitant]
     Active Substance: TETRACYCLINE HYDROCHLORIDE
     Indication: BLOOD CHOLESTEROL
  2. XIIDRA [Suspect]
     Active Substance: LIFITEGRAST
     Indication: DRY EYE
     Dosage: 1 GTT, 2X/DAY:BID
     Route: 047
     Dates: start: 20161209, end: 201702

REACTIONS (3)
  - Dysgeusia [Recovered/Resolved]
  - Ageusia [Not Recovered/Not Resolved]
  - Weight decreased [Not Recovered/Not Resolved]

NARRATIVE: CASE EVENT DATE: 20170311
